FAERS Safety Report 9445738 (Version 1)
Quarter: 2013Q3

REPORT INFORMATION
  Report Type: Spontaneous
  Country: US (occurrence: US)
  Receive Date: 20130807
  Receipt Date: 20130807
  Transmission Date: 20140515
  Serious: Yes (Other)
  Sender: FDA-Public Use
  Company Number: US-BRISTOL-MYERS SQUIBB COMPANY-19142769

PATIENT
  Age: 80 Year
  Sex: Female

DRUGS (23)
  1. BYETTA [Suspect]
     Dates: start: 200806, end: 200807
  2. LASIX [Concomitant]
  3. AMIODARONE [Concomitant]
  4. PLAVIX [Concomitant]
  5. DIAZEPAM [Concomitant]
     Dosage: 1DF=5MG HALF TAB
  6. HYDRALAZINE [Concomitant]
  7. KEPPRA [Concomitant]
  8. DULERA [Concomitant]
     Dosage: 1DF= 2 PUFFS
  9. ALBUTEROL [Concomitant]
     Dosage: 1DF= 2 PUFFS?EVERY 6 HRS
  10. COREG [Concomitant]
  11. SPIRONOLACTONE [Concomitant]
  12. HYDRALAZINE [Concomitant]
  13. AMIODARONE [Concomitant]
  14. GLIPIZIDE [Concomitant]
  15. COUMADIN [Concomitant]
  16. ASA [Concomitant]
  17. LASIX [Concomitant]
  18. VALIUM [Concomitant]
  19. POTASSIUM CHLORIDE [Concomitant]
  20. LACTULOSE [Concomitant]
  21. MAGNESIUM CITRATE [Concomitant]
  22. ISOSORBIDE MONONITRATE [Concomitant]
  23. HYDRALAZINE [Concomitant]

REACTIONS (1)
  - Pancreatic carcinoma [Unknown]
